FAERS Safety Report 12976866 (Version 5)
Quarter: 2019Q3

REPORT INFORMATION
  Report Type: Report from Study
  Country: US (occurrence: US)
  Receive Date: 20161128
  Receipt Date: 20190919
  Transmission Date: 20191004
  Serious: Yes (Other)
  Sender: FDA-Public Use
  Company Number: PHHY2016US160488

PATIENT
  Age: 43 Year
  Sex: Male

DRUGS (1)
  1. GILENYA [Suspect]
     Active Substance: FINGOLIMOD HYDROCHLORIDE
     Indication: MULTIPLE SCLEROSIS
     Dosage: UNK, QD
     Route: 048

REACTIONS (4)
  - Alanine aminotransferase increased [Unknown]
  - Lymphocyte count decreased [Unknown]
  - Hepatitis [Unknown]
  - Astigmatism [Unknown]

NARRATIVE: CASE EVENT DATE: 20160923
